FAERS Safety Report 21636111 (Version 5)
Quarter: 2023Q1

REPORT INFORMATION
  Report Type: Other
  Country: FR (occurrence: FR)
  Receive Date: 20221123
  Receipt Date: 20230310
  Transmission Date: 20230418
  Serious: Yes (Other)
  Sender: FDA-Public Use
  Company Number: FR-CELLTRION INC.-2022FR017559

PATIENT

DRUGS (27)
  1. RITUXIMAB [Suspect]
     Active Substance: RITUXIMAB
     Indication: Mantle cell lymphoma
     Dosage: 640 MG, MONTHLY (ROUTE OF ADMINISTRATION TERMID ROA-20053000)
     Route: 042
     Dates: start: 20211129, end: 202206
  2. RITUXIMAB [Suspect]
     Active Substance: RITUXIMAB
     Dosage: 640 MG, QM/640 MILLIGRAM, QMO
     Route: 042
     Dates: start: 20211129, end: 202206
  3. ALPRAZOLAM [Suspect]
     Active Substance: ALPRAZOLAM
     Indication: Mixed anxiety and depressive disorder
     Dosage: 0.25 MILLIGRAM, EVERY 1 DAY (ROUTE: ROA-20053000)
     Route: 048
  4. ALPRAZOLAM [Suspect]
     Active Substance: ALPRAZOLAM
     Indication: Mixed anxiety and depressive disorder
     Dosage: 0.25 MG, QD
     Route: 048
  5. PROPRANOLOL [Suspect]
     Active Substance: PROPRANOLOL HYDROCHLORIDE
     Indication: Hypertension
     Dosage: 200 MILLIGRAM, EVERY 1 DAYS (ROUTE: ROA-20053000)
  6. PROPRANOLOL [Suspect]
     Active Substance: PROPRANOLOL HYDROCHLORIDE
     Dosage: 20 MG, QD
     Route: 048
  7. PROPRANOLOL [Suspect]
     Active Substance: PROPRANOLOL HYDROCHLORIDE
     Indication: Hypertension
     Dosage: 20 MG, QD
     Route: 048
  8. VALACYCLOVIR HYDROCHLORIDE [Suspect]
     Active Substance: VALACYCLOVIR HYDROCHLORIDE
     Indication: Antiviral prophylaxis
     Dosage: 1000 MILLIGRAM, EVERY 1 DAY DAY (ROUTE: ROA-20053000)/1000 MG, QD
     Route: 048
     Dates: start: 202111, end: 20220810
  9. VALACYCLOVIR HYDROCHLORIDE [Suspect]
     Active Substance: VALACYCLOVIR HYDROCHLORIDE
     Indication: Antiviral prophylaxis
     Dosage: 1000 MG
     Route: 048
     Dates: start: 202111, end: 20220810
  10. TRIMEBUTINE [Suspect]
     Active Substance: TRIMEBUTINE
     Indication: Constipation
     Dosage: 400 MG, QD
     Route: 048
     Dates: start: 202204, end: 20220822
  11. TRIMEBUTINE [Suspect]
     Active Substance: TRIMEBUTINE
     Dosage: 400 MG, QD 200MG 2*/JR
     Route: 048
     Dates: start: 202204, end: 20220822
  12. TRIMEBUTINE [Suspect]
     Active Substance: TRIMEBUTINE
     Indication: Constipation
     Dosage: UNK
     Route: 048
     Dates: start: 202204, end: 20220822
  13. ZANUBRUTINIB [Suspect]
     Active Substance: ZANUBRUTINIB
     Indication: Mantle cell lymphoma
     Dosage: 320 MILLIGRAM, QD (ROUTE: ROA-20045000)
     Route: 048
     Dates: start: 20211129, end: 20220822
  14. ZANUBRUTINIB [Suspect]
     Active Substance: ZANUBRUTINIB
     Indication: Mantle cell lymphoma
     Dosage: 320 MG, QD
     Route: 048
     Dates: start: 20211129, end: 20220822
  15. BRUKINSA [Suspect]
     Active Substance: ZANUBRUTINIB
     Indication: Mantle cell lymphoma
     Dosage: 320 MG, QD
     Route: 048
     Dates: start: 20211129, end: 20220822
  16. BACTRIM [Suspect]
     Active Substance: SULFAMETHOXAZOLE\TRIMETHOPRIM
     Indication: Antifungal prophylaxis
     Dosage: 3 DOSAGE800/160 MG EVERY 1 WEEK (ROUTE: ROA-20053000)
     Dates: start: 202111
  17. BACTRIM [Suspect]
     Active Substance: SULFAMETHOXAZOLE\TRIMETHOPRIM
     Dosage: 3 DOSAGE 800/160 MG/3 DOSAGE FORM, QWK
     Route: 048
     Dates: start: 202111, end: 20220810
  18. AZELASTINE [Suspect]
     Active Substance: AZELASTINE
     Indication: Hypersensitivity
     Dosage: EVERY 1 DAY (2 DOSAGE) (ROUTE: ROA-20053000)/2 DOSAGE FORM, QD
     Route: 045
  19. AZELASTINE [Suspect]
     Active Substance: AZELASTINE
     Dosage: 2 DF, QD/2 DOSAGE FORM, QD
     Route: 048
  20. AZELASTINE [Suspect]
     Active Substance: AZELASTINE
     Indication: Hypersensitivity
     Dosage: 2 DF, QD
     Route: 048
  21. PAROXETINE [Suspect]
     Active Substance: PAROXETINE
     Indication: Mixed anxiety and depressive disorder
     Dosage: 20 MILLIGRAM, EVERY 1 DAY (ROUTE: ROA-20053000)
     Route: 048
  22. LANSOPRAZOLE [Suspect]
     Active Substance: LANSOPRAZOLE
     Indication: Prophylaxis
     Dosage: 15 MILLIGRAM, EVERY 1 DAY (ROUTE: ROA-20053000) DATE OF MOST RECENT DOSE: OCT/2022
     Route: 048
  23. LANSOPRAZOLE [Suspect]
     Active Substance: LANSOPRAZOLE
     Indication: Product used for unknown indication
     Dosage: 15 MG, QD
     Route: 048
  24. PAROXETINE HYDROCHLORIDE [Suspect]
     Active Substance: PAROXETINE HYDROCHLORIDE
     Indication: Mixed anxiety and depressive disorder
     Dosage: 20 MG, QD
     Route: 048
  25. SULFAMETHOXAZOLE\TRIMETHOPRIM [Suspect]
     Active Substance: SULFAMETHOXAZOLE\TRIMETHOPRIM
     Indication: Antifungal prophylaxis
     Dosage: 3 DOSAGE FORM, QWK
     Dates: start: 202111
  26. Alprim [Concomitant]
     Indication: Antifungal prophylaxis
     Dosage: 3 DF, QW/INDETERMINATE_CHECK_BOX DRUGCHARACTERIZATION : 1 INDETERMINATE_CHECK_BOX/3 DOSAGE FORM, QWK
     Route: 048
     Dates: start: 202111, end: 20220810
  27. SULFAMETHOXAZOLE\TRIMETHOPRIM [Concomitant]
     Active Substance: SULFAMETHOXAZOLE\TRIMETHOPRIM
     Indication: Antifungal prophylaxis
     Dosage: 3 DOSAGE FORM, QWK
     Dates: start: 202111

REACTIONS (2)
  - Diarrhoea [Not Recovered/Not Resolved]
  - Off label use [Unknown]

NARRATIVE: CASE EVENT DATE: 20220502
